FAERS Safety Report 21435474 (Version 5)
Quarter: 2023Q2

REPORT INFORMATION
  Report Type: Report from Study
  Country: US (occurrence: US)
  Receive Date: 20221010
  Receipt Date: 20230518
  Transmission Date: 20230722
  Serious: Yes (Hospitalization, Other)
  Sender: FDA-Public Use
  Company Number: US-JAZZ-2022-US-031513

PATIENT
  Age: 33 Year
  Sex: Female

DRUGS (26)
  1. XYREM [Suspect]
     Active Substance: SODIUM OXYBATE
     Indication: Narcolepsy
     Dosage: UNK
  2. XYREM [Suspect]
     Active Substance: SODIUM OXYBATE
     Indication: Insomnia
  3. XYREM [Suspect]
     Active Substance: SODIUM OXYBATE
     Indication: Cataplexy
  4. XYREM [Suspect]
     Active Substance: SODIUM OXYBATE
     Indication: Somnolence
  5. ACETAMINOPHEN\OXYCODONE HYDROCHLORIDE\OXYCODONE TEREPHTHALATE [Suspect]
     Active Substance: ACETAMINOPHEN\OXYCODONE HYDROCHLORIDE\OXYCODONE TEREPHTHALATE
  6. ELIQUIS [Suspect]
     Active Substance: APIXABAN
     Indication: Product used for unknown indication
  7. DIAZEPAM [Suspect]
     Active Substance: DIAZEPAM
     Indication: Product used for unknown indication
  8. XARELTO [Suspect]
     Active Substance: RIVAROXABAN
     Indication: Product used for unknown indication
  9. ENOXAPARIN SODIUM [Suspect]
     Active Substance: ENOXAPARIN SODIUM
     Indication: Product used for unknown indication
  10. MIDODRINE HYDROCHLORIDE [Concomitant]
     Active Substance: MIDODRINE HYDROCHLORIDE
     Indication: Product used for unknown indication
     Dosage: UNK
     Dates: start: 20160106
  11. BYSTOLIC [Concomitant]
     Active Substance: NEBIVOLOL HYDROCHLORIDE
     Indication: Product used for unknown indication
     Dosage: UNK
     Dates: start: 20160106
  12. PROMETHAZINE [Concomitant]
     Active Substance: PROMETHAZINE HYDROCHLORIDE
     Indication: Product used for unknown indication
     Dosage: UNK
     Dates: start: 20160106
  13. PYRIDOSTIGMINE [Concomitant]
     Active Substance: PYRIDOSTIGMINE
     Indication: Product used for unknown indication
     Dosage: UNK
     Dates: start: 20160106
  14. MAXALT-MLT [Concomitant]
     Active Substance: RIZATRIPTAN BENZOATE
     Indication: Product used for unknown indication
     Dosage: UNK
     Dates: start: 20160106
  15. FIORICET WITH CODEINE [Concomitant]
     Active Substance: ACETAMINOPHEN\BUTALBITAL\CAFFEINE\CODEINE PHOSPHATE
     Indication: Product used for unknown indication
     Dosage: UNK
     Dates: start: 20150101
  16. CYANOCOBALAMIN [Concomitant]
     Active Substance: CYANOCOBALAMIN
     Indication: Product used for unknown indication
     Dosage: UNK
     Dates: start: 20160701
  17. PERCOCET [Concomitant]
     Active Substance: ACETAMINOPHEN\OXYCODONE HYDROCHLORIDE
     Indication: Product used for unknown indication
     Dosage: UNK
     Dates: start: 20150601
  18. CLONAZEPAM [Concomitant]
     Active Substance: CLONAZEPAM
     Indication: Product used for unknown indication
     Dosage: 0.5 MG TABLET
     Dates: start: 20171204
  19. CLONAZEPAM [Concomitant]
     Active Substance: CLONAZEPAM
     Dosage: 1 MG TABLET
     Dates: start: 20190410
  20. IMIPRAMINE HYDROCHLORIDE [Concomitant]
     Active Substance: IMIPRAMINE HYDROCHLORIDE
     Indication: Product used for unknown indication
     Dosage: UNK
     Dates: start: 20171204
  21. FENTANYL [Concomitant]
     Active Substance: FENTANYL
     Indication: Product used for unknown indication
     Dosage: UNK
     Dates: start: 20180301
  22. CYCLOBENZAPRINE [Concomitant]
     Active Substance: CYCLOBENZAPRINE
     Indication: Product used for unknown indication
     Dosage: UNK
     Dates: start: 20190301
  23. TIZANIDINE HYDROCHLORIDE [Concomitant]
     Active Substance: TIZANIDINE HYDROCHLORIDE
     Indication: Product used for unknown indication
     Dosage: UNK
     Dates: start: 20190301
  24. KETOROLAC [Concomitant]
     Active Substance: KETOROLAC TROMETHAMINE
     Indication: Product used for unknown indication
     Dosage: UNK
     Dates: start: 20140201
  25. METHOCARBAMOL [Concomitant]
     Active Substance: METHOCARBAMOL
     Indication: Product used for unknown indication
     Dosage: UNK
     Dates: start: 20130201
  26. MOVANTIK [Concomitant]
     Active Substance: NALOXEGOL OXALATE
     Indication: Product used for unknown indication
     Dosage: UNK
     Dates: start: 20220801

REACTIONS (20)
  - Surgery [Unknown]
  - Pseudostroke [Unknown]
  - Thrombosis [Unknown]
  - Deafness unilateral [Unknown]
  - Sepsis [Unknown]
  - Balance disorder [Unknown]
  - Idiopathic intracranial hypertension [Unknown]
  - Corneal erosion [Unknown]
  - Hypoaesthesia [Unknown]
  - Urticaria [Unknown]
  - Ear pain [Unknown]
  - Malnutrition [Unknown]
  - Dysarthria [Unknown]
  - Pyrexia [Unknown]
  - Dermatitis contact [Unknown]
  - Somnolence [Unknown]
  - Agitation [Unknown]
  - Anxiety [Unknown]
  - Drug interaction [Unknown]
  - Off label use [Unknown]

NARRATIVE: CASE EVENT DATE: 20221201
